FAERS Safety Report 4718316-8 (Version None)
Quarter: 2005Q3

REPORT INFORMATION
  Report Type: 
  Country: None (occurrence: None)
  Receive Date: 20050720
  Receipt Date: 20050708
  Transmission Date: 20060218
  Serious: Yes (Other)
  Sender: FDA-Public Use
  Company Number: PHBS2005US09896

PATIENT
  Age: 34 Year
  Sex: Female

DRUGS (9)
  1. METOPROLOL [Suspect]
     Route: 048
  2. METOPROLOL [Suspect]
     Dosage: 5 MG, ONCE/SINGLE
     Route: 042
  3. ASPIRIN [Concomitant]
  4. HEPARIN [Concomitant]
     Route: 042
  5. GLYCERYL TRINITRATE [Concomitant]
     Route: 042
  6. FLUID/ELECTROLYTE REPLACEMENT THERAPY [Concomitant]
     Route: 042
  7. FAMOTIDINE [Concomitant]
  8. EPTIFIBATIDE [Concomitant]
     Route: 042
  9. CLOPIDOGREL BISULFATE [Concomitant]

REACTIONS (7)
  - BLOOD PRESSURE DECREASED [None]
  - CARDIOVERSION [None]
  - DRUG EXPOSURE DURING PREGNANCY [None]
  - LABOUR INDUCTION [None]
  - NORMAL NEWBORN [None]
  - PREMATURE BABY [None]
  - VENTRICULAR FIBRILLATION [None]
